FAERS Safety Report 8143104 (Version 7)
Quarter: 2012Q4

REPORT INFORMATION
  Report Type: 
  Country: US (occurrence: US)
  Receive Date: 20110919
  Receipt Date: 20120920
  Transmission Date: 20130627
  Serious: Yes (Hospitalization, Other)
  Sender: FDA-Public Use
  Company Number: US-009507513-1109USA01760

PATIENT

DRUGS (8)
  1. FOSAMAX [Suspect]
     Indication: OSTEOPENIA
     Dosage: 10 mg, UNK
     Route: 048
     Dates: start: 19960328, end: 20010102
  2. FOSAMAX [Suspect]
     Indication: OSTEOPOROSIS
     Dosage: 70 mg, QW
     Route: 048
     Dates: start: 20010215, end: 20080204
  3. FOSAMAX [Suspect]
     Indication: OSTEOPENIA
     Dosage: 70 mg, QW
     Route: 048
     Dates: start: 20080303, end: 20100101
  4. FOSAMAX [Suspect]
     Indication: OSTEOPOROSIS
  5. MK-9278 [Concomitant]
     Dosage: UNK, qd
     Dates: start: 1990
  6. FOSAMAX [Suspect]
     Indication: OSTEOPOROSIS
     Route: 048
     Dates: start: 20081015, end: 20091214
  7. FOSAMAX [Suspect]
     Indication: OSTEOPENIA
  8. LIPITOR [Concomitant]
     Indication: HYPERCHOLESTEROLAEMIA
     Dosage: 40 mg, qd

REACTIONS (26)
  - Hip arthroplasty [Unknown]
  - Arthropathy [Unknown]
  - Hypoacusis [Unknown]
  - Haemorrhagic anaemia [Recovering/Resolving]
  - Open reduction of fracture [Recovered/Resolved]
  - Femur fracture [Recovered/Resolved]
  - Open reduction of fracture [Recovering/Resolving]
  - Femur fracture [Recovering/Resolving]
  - Low turnover osteopathy [Unknown]
  - Hypertension [Unknown]
  - Incision site oedema [Recovering/Resolving]
  - Incision site haematoma [Recovering/Resolving]
  - Limb asymmetry [Unknown]
  - Spinal osteoarthritis [Unknown]
  - Osteoarthritis [Unknown]
  - Animal bite [Unknown]
  - Wound [Recovering/Resolving]
  - Incision site pain [Unknown]
  - Joint stiffness [Unknown]
  - Fall [Unknown]
  - Vascular calcification [Unknown]
  - Osteoarthritis [Unknown]
  - Oedema peripheral [Unknown]
  - Arthralgia [Unknown]
  - Cataract operation [Unknown]
  - Cataract [Unknown]
